FAERS Safety Report 8024080-X (Version None)
Quarter: 2011Q4

REPORT INFORMATION
  Report Type: 
  Country: None (occurrence: None)
  Receive Date: 20111130
  Receipt Date: 20110104
  Transmission Date: 20120403
  Serious: Yes (Hospitalization)
  Sender: FDA-Public Use
  Company Number: 317200

PATIENT
  Age: 12 Year
  Sex: Female

DRUGS (2)
  1. NOVOLOG [Suspect]
     Indication: DIABETES MELLITUS
  2. LEVEMIR [Suspect]
     Indication: DIABETES MELLITUS
     Dosage: SUBCUTANEOUS
     Route: 058

REACTIONS (1)
  - BLOOD GLUCOSE ABNORMAL [None]
